FAERS Safety Report 7115450-2 (Version None)
Quarter: 2010Q4

REPORT INFORMATION
  Report Type: 
  Country: None (occurrence: None)
  Receive Date: 20101122
  Receipt Date: 20100201
  Transmission Date: 20110411
  Serious: No
  Sender: FDA-Public Use
  Company Number: US-BAYER-201013136NA

PATIENT
  Age: 55 Year
  Sex: Female
  Weight: 48 kg

DRUGS (6)
  1. CLIMARA PRO [Suspect]
     Indication: HORMONE REPLACEMENT THERAPY
     Route: 062
     Dates: start: 20090801
  2. WELLBUTRIN [Concomitant]
  3. PRILOSEC [Concomitant]
  4. CRESTOR [Concomitant]
  5. INDERAL [Concomitant]
  6. LISINOPRIL [Concomitant]

REACTIONS (1)
  - APPLICATION SITE RASH [None]
